FAERS Safety Report 20617200 (Version 1)
Quarter: 2022Q1

REPORT INFORMATION
  Report Type: Spontaneous
  Country: CA (occurrence: None)
  Receive Date: 20220319
  Receipt Date: 20220319
  Transmission Date: 20220423
  Serious: Yes (Other)
  Sender: FDA-Public Use
  Company Number: None

PATIENT
  Age: 81 Year
  Sex: Male
  Weight: 99 kg

DRUGS (9)
  1. PREGABALIN [Suspect]
     Active Substance: PREGABALIN
     Indication: Neuropathy peripheral
     Dosage: OTHER QUANTITY : 1 CAPSULE(S);?FREQUENCY : TWICE A DAY;?
     Route: 048
     Dates: start: 20220317, end: 20220318
  2. Lantus pen 20 units [Concomitant]
  3. Humalog 10 units twice per day [Concomitant]
  4. Ozempic 5 units per week [Concomitant]
  5. RAMIPRIL [Concomitant]
     Active Substance: RAMIPRIL
  6. JARDIANCE [Concomitant]
     Active Substance: EMPAGLIFLOZIN
  7. Metformin 500mg -4 per day [Concomitant]
  8. ATORVASTATIN [Concomitant]
     Active Substance: ATORVASTATIN
  9. B-12 injection once per month [Concomitant]

REACTIONS (4)
  - Blood glucose decreased [None]
  - Dizziness [None]
  - Gait disturbance [None]
  - Somnolence [None]

NARRATIVE: CASE EVENT DATE: 20220318
